FAERS Safety Report 5168504-4 (Version None)
Quarter: 2006Q4

REPORT INFORMATION
  Report Type: 
  Country: None (occurrence: None)
  Receive Date: 20061201
  Receipt Date: 20061109
  Transmission Date: 20070319
  Serious: Yes (Hospitalization)
  Sender: FDA-Public Use
  Company Number: 2006123595

PATIENT
  Age: 63 Year
  Sex: Female
  Weight: 115 kg

DRUGS (6)
  1. LYRICA [Suspect]
     Indication: DIABETIC NEUROPATHY
     Dosage: 600 MG (300 MG, 2 IN 1 D), ORAL
     Route: 048
     Dates: start: 20060323
  2. CARDIO ASPIRINA (ACETYLSALICYLIC ACID) [Concomitant]
  3. ACTRAPID (INSULIN) [Concomitant]
  4. BUMETANIDE [Concomitant]
  5. DEPAKENE [Concomitant]
  6. SIMVASTATIN [Concomitant]

REACTIONS (3)
  - FALL [None]
  - MENTAL DISORDER [None]
  - MUSCULAR WEAKNESS [None]
